FAERS Safety Report 24188321 (Version 1)
Quarter: 2024Q3

REPORT INFORMATION
  Report Type: Spontaneous
  Country: US (occurrence: US)
  Receive Date: 20240808
  Receipt Date: 20240808
  Transmission Date: 20241017
  Serious: No
  Sender: OTSUKA
  Company Number: US-OTSUKA-2023_022620

PATIENT
  Sex: Male
  Weight: 80.9 kg

DRUGS (1)
  1. ABILIFY MAINTENA [Suspect]
     Active Substance: ARIPIPRAZOLE
     Indication: Affective disorder
     Dosage: 300 MG
     Route: 065
     Dates: start: 20230815

REACTIONS (3)
  - Akathisia [Unknown]
  - Restlessness [Unknown]
  - Product use in unapproved indication [Unknown]
